FAERS Safety Report 10159338 (Version 1)
Quarter: 2014Q2

REPORT INFORMATION
  Report Type: Spontaneous
  Country: US (occurrence: US)
  Receive Date: 20140508
  Receipt Date: 20140508
  Transmission Date: 20141212
  Serious: Yes (Hospitalization)
  Sender: FDA-Public Use
  Company Number: US-ROCHE-1394776

PATIENT
  Sex: Male

DRUGS (5)
  1. VALIUM [Suspect]
     Indication: PRODUCT USED FOR UNKNOWN INDICATION
     Route: 065
  2. OXYCODONE [Concomitant]
     Route: 065
  3. PERCOCET [Concomitant]
     Route: 065
  4. FLEXERIL (UNITED STATES) [Concomitant]
  5. METHADONE [Concomitant]
     Route: 065

REACTIONS (1)
  - Pain [Unknown]
